FAERS Safety Report 12327144 (Version 2)
Quarter: 2016Q2

REPORT INFORMATION
  Report Type: Spontaneous
  Country: GB (occurrence: GB)
  Receive Date: 20160503
  Receipt Date: 20160527
  Transmission Date: 20160815
  Serious: Yes (Other)
  Sender: FDA-Public Use
  Company Number: GB-ACTAVISPR-2016-08654

PATIENT
  Sex: Male

DRUGS (1)
  1. LEVETIRACETAM. [Suspect]
     Active Substance: LEVETIRACETAM
     Indication: EPILEPSY
     Dosage: 7 ML, BID
     Route: 048
     Dates: start: 20140606

REACTIONS (2)
  - Constipation [Not Recovered/Not Resolved]
  - Anal incontinence [Not Recovered/Not Resolved]
